FAERS Safety Report 5098842-5 (Version None)
Quarter: 2006Q3

REPORT INFORMATION
  Report Type: 
  Country: None (occurrence: None)
  Receive Date: 20060907
  Receipt Date: 20060127
  Transmission Date: 20061208
  Serious: Yes (Hospitalization)
  Sender: FDA-Public Use
  Company Number: US-BRISTOL-MYERS SQUIBB COMPANY-13262860

PATIENT
  Age: 42 Year
  Sex: Female

DRUGS (6)
  1. CISPLATIN [Suspect]
     Indication: METASTATIC GASTRIC CANCER
     Route: 042
     Dates: start: 20041221, end: 20041221
  2. TS-1 [Suspect]
     Indication: METASTATIC GASTRIC CANCER
     Route: 048
     Dates: start: 20041221, end: 20050110
  3. ANZEMET [Concomitant]
     Indication: PREMEDICATION
     Route: 042
     Dates: start: 20041221, end: 20041221
  4. ATIVAN [Concomitant]
     Indication: VOMITING
     Route: 048
     Dates: start: 20041228
  5. DECADRON [Concomitant]
     Indication: VOMITING
     Route: 048
     Dates: start: 20041229, end: 20041231
  6. ZOFRAN [Concomitant]
     Indication: VOMITING
     Route: 048
     Dates: start: 20041228

REACTIONS (1)
  - SEPSIS [None]
